FAERS Safety Report 6163334 (Version 4)
Quarter: 2020Q2

REPORT INFORMATION
  Report Type: Spontaneous
  Country: US (occurrence: US)
  Receive Date: 20061108
  Receipt Date: 20200605
  Transmission Date: 20200714
  Serious: Yes (Hospitalization, Other)
  Sender: FDA-Public Use
  Company Number: US-JNJFOC-20061100569

PATIENT
  Sex: Female
  Weight: 63.56 kg

DRUGS (3)
  1. LIBROX [Concomitant]
  2. REMICADE [Suspect]
     Active Substance: INFLIXIMAB
     Indication: CROHN^S DISEASE
     Route: 042
     Dates: start: 1999, end: 2003
  3. SYNTHROID [Concomitant]
     Active Substance: LEVOTHYROXINE SODIUM
     Indication: HYPOTHYROIDISM
     Dosage: DURATION= 1 YEAR

REACTIONS (9)
  - Hypersensitivity [Recovered/Resolved]
  - Product use issue [Unknown]
  - Hypertension [Unknown]
  - Off label use [Unknown]
  - Drug ineffective [Unknown]
  - Arthralgia [Unknown]
  - Cardiac disorder [Unknown]
  - Angina pectoris [Unknown]
  - Fistula [Unknown]

NARRATIVE: CASE EVENT DATE: 1999
